FAERS Safety Report 8382939-8 (Version None)
Quarter: 2012Q2

REPORT INFORMATION
  Report Type: 
  Country: None (occurrence: None)
  Receive Date: 20120524
  Receipt Date: 20120510
  Transmission Date: 20120825
  Serious: Yes (Other)
  Sender: FDA-Public Use
  Company Number: US-JNJFOC-20120510977

PATIENT

DRUGS (5)
  1. DOXORUBICIN HCL [Suspect]
     Indication: HODGKIN'S DISEASE
     Route: 042
  2. BLEOMYCIN [Suspect]
     Indication: HODGKIN'S DISEASE
     Route: 065
  3. INTERFERON ALFA [Suspect]
     Indication: HODGKIN'S DISEASE
     Route: 058
  4. VINBLASTINE SULFATE [Suspect]
     Indication: HODGKIN'S DISEASE
     Route: 065
  5. DACARBAZINE [Suspect]
     Indication: HODGKIN'S DISEASE
     Route: 065

REACTIONS (7)
  - HODGKIN'S DISEASE [None]
  - ASTHENIA [None]
  - MENTAL DISORDER [None]
  - PYREXIA [None]
  - VOMITING [None]
  - NAUSEA [None]
  - HEPATIC ENZYME INCREASED [None]
